FAERS Safety Report 22242313 (Version 1)
Quarter: 2023Q2

REPORT INFORMATION
  Report Type: Spontaneous
  Country: US (occurrence: None)
  Receive Date: 20230422
  Receipt Date: 20230422
  Transmission Date: 20230721
  Serious: No
  Sender: FDA-Public Use
  Company Number: 2023A076249

PATIENT

DRUGS (1)
  1. BREZTRI [Suspect]
     Active Substance: BUDESONIDE\FORMOTEROL\GLYCOPYRROLATE
     Indication: Chronic obstructive pulmonary disease
     Dosage: 160/9/4.8 UG/INHAL TWO TIMES A DAY
     Route: 055

REACTIONS (4)
  - Fear [Recovered/Resolved]
  - Dyspnoea [Not Recovered/Not Resolved]
  - Heart rate increased [Unknown]
  - Device malfunction [Not Recovered/Not Resolved]
